FAERS Safety Report 4969210-9 (Version None)
Quarter: 2006Q2

REPORT INFORMATION
  Report Type: 
  Country: None (occurrence: None)
  Receive Date: 20060405
  Receipt Date: 20060324
  Transmission Date: 20061013
  Serious: Yes (Other)
  Sender: FDA-Public Use
  Company Number: 2006041792

PATIENT
  Age: 68 Year
  Sex: Male
  Weight: 99.3377 kg

DRUGS (2)
  1. NEURONTIN [Suspect]
     Indication: NEUROPATHY PERIPHERAL
     Dosage: 300 MG (300 MG)
     Dates: start: 20040209, end: 20040101
  2. LYRICA [Suspect]
     Indication: NEUROPATHY PERIPHERAL
     Dosage: 100 MG (50 MG, 2 IN 1 D)
     Dates: start: 20060318

REACTIONS (7)
  - ABNORMAL DREAMS [None]
  - CONDITION AGGRAVATED [None]
  - INSOMNIA [None]
  - NEUROPATHY [None]
  - NIGHTMARE [None]
  - NON-HODGKIN'S LYMPHOMA [None]
  - RESTLESSNESS [None]
